FAERS Safety Report 5705785-X (Version None)
Quarter: 2008Q2

REPORT INFORMATION
  Report Type: 
  Country: None (occurrence: None)
  Receive Date: 20080411
  Receipt Date: 20080402
  Transmission Date: 20081010
  Serious: Yes (Hospitalization)
  Sender: FDA-Public Use
  Company Number: 2008SP000709

PATIENT
  Age: 61 Year
  Sex: Male
  Weight: 77.1115 kg

DRUGS (4)
  1. LUNESTA [Suspect]
     Indication: INSOMNIA
     Dosage: 3 MG;XQ;ORAL
     Route: 048
     Dates: start: 20080324, end: 20080324
  2. CHEMOTHERAPEUTICS NOS [Concomitant]
  3. CHOLESTEROL [Concomitant]
  4. APPETITE STIMULATE [Concomitant]

REACTIONS (3)
  - DYSGEUSIA [None]
  - PULMONARY THROMBOSIS [None]
  - THROMBOSIS [None]
